FAERS Safety Report 11110071 (Version 2)
Quarter: 2015Q3

REPORT INFORMATION
  Report Type: Spontaneous
  Country: US (occurrence: US)
  Receive Date: 20150513
  Receipt Date: 20150907
  Transmission Date: 20151125
  Serious: No
  Sender: FDA-Public Use
  Company Number: US-PFIZER INC-2015160835

PATIENT
  Age: 12 Year
  Sex: Female

DRUGS (2)
  1. GENOTROPIN [Suspect]
     Active Substance: SOMATROPIN
     Indication: GONADAL DYSGENESIS
     Dosage: 1.4 MG, 1X/DAY
     Route: 058
     Dates: start: 20150310
  2. GENOTROPIN [Suspect]
     Active Substance: SOMATROPIN
     Indication: TURNER^S SYNDROME

REACTIONS (1)
  - Headache [Unknown]

NARRATIVE: CASE EVENT DATE: 2015
